FAERS Safety Report 4654679-X (Version None)
Quarter: 2005Q2

REPORT INFORMATION
  Report Type: 
  Country: None (occurrence: None)
  Receive Date: 20050504
  Receipt Date: 20050504
  Transmission Date: 20051028
  Serious: Yes (Life-Threatening)
  Sender: FDA-Public Use
  Company Number: None

PATIENT
  Age: 18 Month
  Sex: Male
  Weight: 10.5 kg

DRUGS (2)
  1. TIGAN [Suspect]
     Indication: VOMITING
     Dates: start: 20050423
  2. D5 1/2 NS IV SOLUTION [Suspect]
     Route: 042
     Dates: start: 20050423

REACTIONS (8)
  - BRADYCARDIA [None]
  - CARDIOVASCULAR DISORDER [None]
  - CYANOSIS [None]
  - LOSS OF CONSCIOUSNESS [None]
  - MALAISE [None]
  - PAIN [None]
  - PALLOR [None]
  - POOR PERIPHERAL CIRCULATION [None]
